FAERS Safety Report 8299108-2 (Version None)
Quarter: 2012Q2

REPORT INFORMATION
  Report Type: 
  Country: None (occurrence: None)
  Receive Date: 20120419
  Receipt Date: 20120412
  Transmission Date: 20120825
  Serious: Yes (Life-Threatening, Hospitalization, Other)
  Sender: FDA-Public Use
  Company Number: PHHY2011FR61889

PATIENT
  Sex: Female
  Weight: 13.5 kg

DRUGS (5)
  1. MYCOPHENOLATE MOFETIL (CELLCEPT) [Concomitant]
     Dosage: UNK UKN, UNK
  2. CORTICOSTEROIDS [Concomitant]
     Dosage: UNK UKN, UNK
  3. SOMATROPIN RDNA [Concomitant]
     Dosage: 0.6 MG, UNK
     Dates: start: 20101001
  4. SIMULECT [Suspect]
     Indication: RENAL TRANSPLANT
     Dosage: 20 MG,
     Route: 042
     Dates: start: 20110501
  5. SIMULECT [Suspect]
     Dosage: 10 MG, UNK
     Route: 042
     Dates: start: 20110612

REACTIONS (9)
  - BRONCHOSPASM [None]
  - DYSPNOEA [None]
  - CYANOSIS [None]
  - HYPOTENSION [None]
  - ANAPHYLACTIC SHOCK [None]
  - CARDIAC ARREST [None]
  - LARYNGEAL OEDEMA [None]
  - HISTAMINE LEVEL INCREASED [None]
  - RENAL FAILURE [None]
